FAERS Safety Report 15997431 (Version 1)
Quarter: 2019Q1

REPORT INFORMATION
  Report Type: Report from Study
  Country: RU (occurrence: RU)
  Receive Date: 20190222
  Receipt Date: 20190222
  Transmission Date: 20190418
  Serious: Yes (Life-Threatening, Hospitalization)
  Sender: FDA-Public Use
  Company Number: RU-BRISTOL-MYERS SQUIBB COMPANY-BMS-2019-018420

PATIENT
  Age: 61 Year
  Sex: Female
  Weight: 71 kg

DRUGS (6)
  1. IPILIMUMAB [Suspect]
     Active Substance: IPILIMUMAB
     Indication: NON-SMALL CELL LUNG CANCER
     Dosage: 71 MG, UNK
     Route: 042
     Dates: start: 20180424
  2. NIVOLUMAB [Suspect]
     Active Substance: NIVOLUMAB
     Indication: NON-SMALL CELL LUNG CANCER
     Dosage: 360 MG, UNK
     Route: 042
     Dates: start: 20180424
  3. PEMETREXED DISODIUM [Suspect]
     Active Substance: PEMETREXED DISODIUM
     Indication: NON-SMALL CELL LUNG CANCER
     Dosage: 850 MG, UNK
     Route: 065
     Dates: start: 20180424
  4. CARDIOMAGNYL [Concomitant]
     Active Substance: ASPIRIN\MAGNESIUM HYDROXIDE
     Indication: PRODUCT USED FOR UNKNOWN INDICATION
     Route: 048
     Dates: start: 20140101
  5. LOSARTAN. [Concomitant]
     Active Substance: LOSARTAN
     Indication: PRODUCT USED FOR UNKNOWN INDICATION
     Route: 048
     Dates: start: 20180724
  6. CARBOPLATIN. [Suspect]
     Active Substance: CARBOPLATIN
     Indication: NON-SMALL CELL LUNG CANCER
     Dosage: 530 MG, UNK
     Route: 065
     Dates: start: 20180424

REACTIONS (1)
  - Hypophysitis [Not Recovered/Not Resolved]

NARRATIVE: CASE EVENT DATE: 20190218
